FAERS Safety Report 6760639-5 (Version None)
Quarter: 2010Q2

REPORT INFORMATION
  Report Type: 
  Country: None (occurrence: None)
  Receive Date: 20100608
  Receipt Date: 20100526
  Transmission Date: 20101027
  Serious: Yes (Other)
  Sender: FDA-Public Use
  Company Number: US-PFIZER INC-2010067086

PATIENT
  Sex: Male
  Weight: 54.422 kg

DRUGS (7)
  1. CHANTIX [Interacting]
     Indication: SMOKING CESSATION THERAPY
     Dosage: UNK
     Route: 048
  2. NAVANE [Interacting]
     Indication: MENTAL DISORDER
     Dosage: UNK
  3. NAVANE [Interacting]
     Indication: EMOTIONAL DISORDER
  4. WELLBUTRIN [Interacting]
     Indication: MENTAL DISORDER
     Dosage: UNK
  5. WELLBUTRIN [Interacting]
     Indication: EMOTIONAL DISORDER
  6. BUSPAR [Suspect]
     Indication: MENTAL DISORDER
     Dosage: UNK
  7. BUSPAR [Suspect]
     Indication: EMOTIONAL DISORDER

REACTIONS (6)
  - BRONCHITIS [None]
  - CHRONIC OBSTRUCTIVE PULMONARY DISEASE [None]
  - DELUSION [None]
  - DRUG INTERACTION [None]
  - DYSPNOEA [None]
  - WEIGHT DECREASED [None]
